FAERS Safety Report 20063680 (Version 1)
Quarter: 2021Q4

REPORT INFORMATION
  Report Type: Spontaneous
  Country: US (occurrence: US)
  Receive Date: 20211112
  Receipt Date: 20211112
  Transmission Date: 20220303
  Serious: No
  Sender: FDA-Public Use
  Company Number: US-PFIZER INC-202101512231

PATIENT
  Age: 54 Year
  Sex: Female

DRUGS (1)
  1. LYRICA [Suspect]
     Active Substance: PREGABALIN
     Indication: Systemic lupus erythematosus
     Dosage: UNK
     Dates: start: 2008

REACTIONS (2)
  - Abdominal pain upper [Unknown]
  - Off label use [Unknown]

NARRATIVE: CASE EVENT DATE: 20080101
